FAERS Safety Report 10408073 (Version 1)
Quarter: 2014Q3

REPORT INFORMATION
  Report Type: Other
  Country: GB (occurrence: GB)
  Receive Date: 20140825
  Receipt Date: 20140825
  Transmission Date: 20150326
  Serious: Yes (Death, Other)
  Sender: FDA-Public Use
  Company Number: GB-MYLAN-2014M1002004

PATIENT

DRUGS (15)
  1. CEFRADINE [Concomitant]
     Active Substance: CEPHRADINE
  2. SOTALOL. [Concomitant]
     Active Substance: SOTALOL
  3. GTN [Concomitant]
     Active Substance: NITROGLYCERIN
  4. OMEPRAZOLE. [Concomitant]
     Active Substance: OMEPRAZOLE
  5. MIRTAZAPINE. [Concomitant]
     Active Substance: MIRTAZAPINE
  6. GAVISCON [Concomitant]
     Active Substance: ALUMINUM HYDROXIDE\MAGNESIUM CARBONATE
  7. LOPERAMIDE [Concomitant]
     Active Substance: LOPERAMIDE
  8. PHENINDIONE [Concomitant]
     Active Substance: PHENINDIONE
  9. SIMVASTATIN. [Concomitant]
     Active Substance: SIMVASTATIN
  10. DICYCLOVERINE [Concomitant]
  11. CETIRIZINE [Concomitant]
     Active Substance: CETIRIZINE HYDROCHLORIDE
  12. DALTEPARIN [Suspect]
     Active Substance: DALTEPARIN
     Indication: ACUTE CORONARY SYNDROME
     Dosage: 10000 IU
     Route: 058
     Dates: start: 20140115
  13. DIAZEPAM. [Concomitant]
     Active Substance: DIAZEPAM
  14. NIFEDIPINE. [Concomitant]
     Active Substance: NIFEDIPINE
  15. CLOPIDOGREL [Suspect]
     Active Substance: CLOPIDOGREL BISULFATE
     Indication: ACUTE CORONARY SYNDROME
     Route: 048
     Dates: start: 2012

REACTIONS (10)
  - Burning sensation [Not Recovered/Not Resolved]
  - Tachycardia [Not Recovered/Not Resolved]
  - Anxiety [Not Recovered/Not Resolved]
  - Unresponsive to stimuli [Recovered/Resolved]
  - Hypotension [Not Recovered/Not Resolved]
  - Malaise [Not Recovered/Not Resolved]
  - Death [Fatal]
  - Echocardiogram abnormal [Not Recovered/Not Resolved]
  - Rash generalised [Not Recovered/Not Resolved]
  - Circulatory collapse [Not Recovered/Not Resolved]

NARRATIVE: CASE EVENT DATE: 20140115
